FAERS Safety Report 8692086 (Version 3)
Quarter: 2012Q4

REPORT INFORMATION
  Report Type: 
  Country: US (occurrence: US)
  Receive Date: 20120730
  Receipt Date: 20120914
  Transmission Date: 20130627
  Serious: Yes (Hospitalization)
  Sender: FDA-Public Use
  Company Number: US-AMGEN-USASP2012046259

PATIENT
  Age: 23 Year
  Sex: Female

DRUGS (1)
  1. ENBREL [Suspect]
     Indication: JUVENILE ARTHRITIS
     Dosage: 50 mg, qwk
     Dates: start: 2005

REACTIONS (4)
  - Caesarean section [Recovered/Resolved]
  - Premature separation of placenta [Recovered/Resolved]
  - Labour induction [Recovered/Resolved]
  - Arthritis [Recovered/Resolved]
